FAERS Safety Report 8820459 (Version 3)
Quarter: 2013Q1

REPORT INFORMATION
  Report Type: Report from Study
  Country: JP (occurrence: JP)
  Receive Date: 20121002
  Receipt Date: 20130219
  Transmission Date: 20140127
  Serious: Yes (Hospitalization)
  Sender: FDA-Public Use
  Company Number: JP-009507513-1209JPN011151

PATIENT
  Age: 66 Year
  Sex: Female
  Weight: 59 kg

DRUGS (12)
  1. PEGINTRON [Suspect]
     Indication: HEPATITIS C
     Dosage: 1.5UG/KG/WEEK
     Route: 058
     Dates: start: 20120905, end: 20120908
  2. REBETOL [Suspect]
     Indication: HEPATITIS C
     Dosage: 400 MG, QD
     Route: 048
     Dates: start: 20120905, end: 20120908
  3. TELAVIC [Suspect]
     Indication: HEPATITIS C
     Dosage: 2250 MG, QD
     Route: 048
     Dates: start: 20120905, end: 20120908
  4. PREDONINE [Suspect]
     Indication: ADVERSE EVENT
     Dosage: 1 G, QD
     Route: 042
     Dates: start: 20120908, end: 20120908
  5. BAYASPIRIN [Concomitant]
     Indication: MYOCARDIAL INFARCTION
     Dosage: 100 MG, QD
     Route: 048
  6. BLOPRESS [Concomitant]
     Indication: HYPERTENSION
     Dosage: 24 MG, QD
     Route: 048
  7. LOCHOL (FLUVASTATIN SODIUM) [Concomitant]
     Indication: PROPHYLAXIS
     Dosage: 20 MG, QD
     Route: 048
  8. ADALAT CR [Concomitant]
     Indication: HYPERTENSION
     Dosage: 120 MG, QD
     Route: 048
  9. MAINTATE [Concomitant]
     Indication: HYPERTENSION
     Dosage: 5 MG, QD
     Route: 048
  10. GASTER D [Concomitant]
     Indication: PROPHYLAXIS
     Route: 048
  11. URSO [Concomitant]
     Indication: CHRONIC HEPATITIS
     Dosage: 600 MG, QD
     Route: 048
  12. PROHEPARUM [Concomitant]
     Indication: CHRONIC HEPATITIS C
     Dosage: 3 DF, QD
     Route: 048

REACTIONS (3)
  - Amylase increased [Recovering/Resolving]
  - Renal failure [Recovering/Resolving]
  - Blood pressure decreased [Recovered/Resolved]
